FAERS Safety Report 6311037-X (Version None)
Quarter: 2009Q3

REPORT INFORMATION
  Report Type: 
  Country: None (occurrence: None)
  Receive Date: 20090817
  Receipt Date: 20090805
  Transmission Date: 20100115
  Serious: Yes (Disabling)
  Sender: FDA-Public Use
  Company Number: GB-RANBAXY-2009RR-26281

PATIENT
  Age: 25 Year
  Sex: Female
  Weight: 74 kg

DRUGS (4)
  1. FLUCONAZOLE [Suspect]
     Indication: VULVOVAGINAL CANDIDIASIS
     Dosage: 150 MG, UNK
     Route: 048
     Dates: start: 20090715
  2. DIANETTE [Concomitant]
     Route: 048
  3. IBUPROFEN [Concomitant]
     Dosage: 200 MG, UNK
     Route: 048
  4. PARACETAMOL [Concomitant]
     Dosage: 1 G, UNK
     Route: 047

REACTIONS (3)
  - OEDEMA PERIPHERAL [None]
  - PAIN [None]
  - PARAESTHESIA [None]
